FAERS Safety Report 7559698-1 (Version None)
Quarter: 2011Q2

REPORT INFORMATION
  Report Type: 
  Country: None (occurrence: None)
  Receive Date: 20110621
  Receipt Date: 20110608
  Transmission Date: 20111010
  Serious: Yes (Hospitalization)
  Sender: FDA-Public Use
  Company Number: US-ELI_LILLY_AND_COMPANY-US201106003394

PATIENT
  Age: 68 Year
  Sex: Female

DRUGS (6)
  1. CYMBALTA [Suspect]
     Dosage: 60 MG, UNKNOWN
     Dates: start: 20110606
  2. ZOLOFT [Concomitant]
     Dosage: 50 MG, EACH MORNING
     Dates: start: 20110606
  3. CYMBALTA [Suspect]
     Dosage: 120 MG, QD
     Dates: start: 20101201, end: 20110603
  4. ZOLOFT [Concomitant]
     Dosage: UNK, UNKNOWN
     Dates: start: 20110503, end: 20110606
  5. CYMBALTA [Suspect]
     Indication: DEPRESSION
     Dosage: 90 MG, QD
     Dates: end: 20101201
  6. ZOLOFT [Concomitant]
     Dosage: 25 MG, EACH EVENING
     Dates: start: 20110606

REACTIONS (9)
  - DECREASED APPETITE [None]
  - ANXIETY [None]
  - HOSPITALISATION [None]
  - NAUSEA [None]
  - NERVOUSNESS [None]
  - INSOMNIA [None]
  - AGITATION [None]
  - DIARRHOEA [None]
  - DRUG WITHDRAWAL SYNDROME [None]
